FAERS Safety Report 10861186 (Version 1)
Quarter: 2015Q1

REPORT INFORMATION
  Report Type: Spontaneous
  Country: US (occurrence: None)
  Receive Date: 20150218
  Receipt Date: 20150218
  Transmission Date: 20150721
  Serious: Yes (Life-Threatening, Hospitalization)
  Sender: FDA-Public Use
  Company Number: None

PATIENT
  Age: 68 Year
  Sex: Male
  Weight: 82.7 kg

DRUGS (11)
  1. METFORMIN [Concomitant]
     Active Substance: METFORMIN HYDROCHLORIDE
  2. FISH OIL [Concomitant]
     Active Substance: FISH OIL
  3. GABAPENTIN. [Concomitant]
     Active Substance: GABAPENTIN
  4. IMURAN [Concomitant]
     Active Substance: AZATHIOPRINE
  5. NORVASC [Concomitant]
     Active Substance: AMLODIPINE BESYLATE
  6. NINTEDANIB [Suspect]
     Active Substance: NINTEDANIB
     Indication: PULMONARY FIBROSIS
     Dosage: STARTED TWELVE DAYS AGO; 1 CAPSULE
     Route: 048
  7. IBUPROFEN. [Concomitant]
     Active Substance: IBUPROFEN
  8. PROSCAR [Concomitant]
     Active Substance: FINASTERIDE
  9. XANAX [Concomitant]
     Active Substance: ALPRAZOLAM
  10. FLEXERIL [Concomitant]
     Active Substance: CYCLOBENZAPRINE HYDROCHLORIDE
  11. PREDNISONE. [Concomitant]
     Active Substance: PREDNISONE

REACTIONS (2)
  - Intestinal perforation [None]
  - Abdominal pain upper [None]

NARRATIVE: CASE EVENT DATE: 20150212
